FAERS Safety Report 15919131 (Version 1)
Quarter: 2019Q1

REPORT INFORMATION
  Report Type: Other
  Country: PT (occurrence: PT)
  Receive Date: 20190205
  Receipt Date: 20190205
  Transmission Date: 20190417
  Serious: Yes (Hospitalization, Other)
  Sender: FDA-Public Use
  Company Number: PT-ASPEN-GLO2019PT000852

PATIENT
  Age: 61 Year
  Sex: Male

DRUGS (1)
  1. DEXAMETHASONE. [Suspect]
     Active Substance: DEXAMETHASONE
     Indication: PLASMA CELL MYELOMA
     Dosage: UNK
     Route: 065

REACTIONS (3)
  - Respiratory failure [Unknown]
  - Pancytopenia [Unknown]
  - Pneumocystis jirovecii pneumonia [Unknown]
